FAERS Safety Report 15907493 (Version 3)
Quarter: 2019Q2

REPORT INFORMATION
  Report Type: Spontaneous
  Country: US (occurrence: US)
  Receive Date: 20190204
  Receipt Date: 20190412
  Transmission Date: 20190711
  Serious: Yes (Hospitalization, Other)
  Sender: FDA-Public Use
  Company Number: US-ASTRAZENECA-2018SF27147

PATIENT
  Age: 22985 Day
  Sex: Female
  Weight: 101.6 kg

DRUGS (14)
  1. PRILOSEC [Suspect]
     Active Substance: OMEPRAZOLE MAGNESIUM
     Indication: GASTROOESOPHAGEAL REFLUX DISEASE
     Route: 048
     Dates: start: 1995, end: 2013
  2. AMLODIPINE BESYLATE. [Concomitant]
     Active Substance: AMLODIPINE BESYLATE
  3. LASIX [Concomitant]
     Active Substance: FUROSEMIDE
  4. PRILOSEC [Suspect]
     Active Substance: OMEPRAZOLE MAGNESIUM
     Indication: GASTROOESOPHAGEAL REFLUX DISEASE
     Route: 048
     Dates: start: 1994, end: 2018
  5. COREG [Concomitant]
     Active Substance: CARVEDILOL
  6. PRILOSEC OTC [Suspect]
     Active Substance: OMEPRAZOLE MAGNESIUM
     Dosage: GENERIC
     Route: 065
     Dates: start: 19941201, end: 20180701
  7. LEVEMIR [Concomitant]
     Active Substance: INSULIN DETEMIR
  8. CALCITRIOL. [Concomitant]
     Active Substance: CALCITRIOL
  9. BAYER [Concomitant]
     Active Substance: ASPIRIN
  10. PRILOSEC [Suspect]
     Active Substance: OMEPRAZOLE MAGNESIUM
     Indication: GASTROOESOPHAGEAL REFLUX DISEASE
     Dosage: GENERIC
     Route: 065
     Dates: start: 19941201, end: 20180701
  11. LOPRESSOR [Concomitant]
     Active Substance: METOPROLOL TARTRATE
  12. TACROLIMUS. [Concomitant]
     Active Substance: TACROLIMUS
  13. PRILOSEC OTC [Suspect]
     Active Substance: OMEPRAZOLE MAGNESIUM
     Route: 048
     Dates: start: 1994, end: 2018
  14. NEPHRO-VITE [Concomitant]

REACTIONS (6)
  - Chronic kidney disease [Unknown]
  - Acute kidney injury [Unknown]
  - Renal disorder [Unknown]
  - End stage renal disease [Unknown]
  - Renal failure [Not Recovered/Not Resolved]
  - Nephrogenic anaemia [Unknown]

NARRATIVE: CASE EVENT DATE: 2012
